FAERS Safety Report 4469215-0 (Version None)
Quarter: 2004Q4

REPORT INFORMATION
  Report Type: 
  Country: None (occurrence: None)
  Receive Date: 20041008
  Receipt Date: 20040826
  Transmission Date: 20050328
  Serious: Yes (Hospitalization)
  Sender: FDA-Public Use
  Company Number: DK-BRISTOL-MYERS SQUIBB COMPANY-12684247

PATIENT
  Age: 61 Year
  Sex: Male
  Weight: 91 kg

DRUGS (4)
  1. CISPLATIN [Suspect]
     Indication: BLADDER CANCER
     Dosage: 1ST DOSE: 31MAR04
     Dates: start: 20040526, end: 20040526
  2. GEMCITABINE [Suspect]
     Indication: BLADDER CANCER
     Dosage: 1ST DOSE: 30MAR04
     Dates: start: 20040603, end: 20040603
  3. TRIMETHOPRIM [Concomitant]
     Dates: start: 20040301
  4. PARACETAMOL [Concomitant]
     Dates: start: 20040330

REACTIONS (2)
  - CATHETER RELATED INFECTION [None]
  - CULTURE URINE POSITIVE [None]
